FAERS Safety Report 14434771 (Version 5)
Quarter: 2018Q4

REPORT INFORMATION
  Report Type: Spontaneous
  Country: PL (occurrence: PL)
  Receive Date: 20180125
  Receipt Date: 20181211
  Transmission Date: 20190204
  Serious: Yes (Death, Other)
  Sender: FDA-Public Use
  Company Number: PL-SUN PHARMACEUTICAL INDUSTRIES LTD-2018R1-160939

PATIENT
  Age: 61 Year
  Sex: Male

DRUGS (6)
  1. TEMOZOLOMIDE. [Suspect]
     Active Substance: TEMOZOLOMIDE
     Indication: PITUITARY TUMOUR BENIGN
     Dosage: 150-200 MG/M2, DAILY FOR 5 CONSECUTIVE DAYS, 28-DAY CYCLE
     Route: 065
     Dates: start: 201504
  2. TEMOZOLOMIDE. [Suspect]
     Active Substance: TEMOZOLOMIDE
     Dosage: 320 MG, 3 CYCLES OF TMZ (28-DAY CYCLE)
     Route: 065
     Dates: start: 20150917, end: 20151217
  3. KETOCONAZOLE. [Concomitant]
     Active Substance: KETOCONAZOLE
     Indication: PRODUCT USED FOR UNKNOWN INDICATION
     Dosage: 300 TO 600MG PER DAY
     Route: 065
  4. ONDANSETRON [Concomitant]
     Active Substance: ONDANSETRON
     Indication: PRODUCT USED FOR UNKNOWN INDICATION
     Route: 065
  5. TEMOZOLOMIDE. [Suspect]
     Active Substance: TEMOZOLOMIDE
     Indication: MALIGNANT GLIOMA
     Dosage: 320 MG, 6 CYCLES OF TMZ, 5 CONSECUTIVE DAYS (28-DAY CYCLE)
     Route: 065
     Dates: start: 20150424, end: 20150917
  6. TRIMETHOPRIM. [Concomitant]
     Active Substance: TRIMETHOPRIM
     Indication: PRODUCT USED FOR UNKNOWN INDICATION
     Route: 065

REACTIONS (9)
  - Brain stem syndrome [Fatal]
  - IIIrd nerve paresis [Unknown]
  - Therapy partial responder [Unknown]
  - Disease progression [Unknown]
  - Nausea [Unknown]
  - Pituitary-dependent Cushing^s syndrome [Unknown]
  - Headache [Unknown]
  - Deafness [Unknown]
  - Off label use [Unknown]

NARRATIVE: CASE EVENT DATE: 201511
